FAERS Safety Report 16767508 (Version 1)
Quarter: 2019Q4

REPORT INFORMATION
  Report Type: Spontaneous
  Country: US (occurrence: US)
  Receive Date: 20190903
  Receipt Date: 20190903
  Transmission Date: 20200122
  Serious: Yes (Hospitalization)
  Sender: FDA-Public Use
  Company Number: None

PATIENT
  Age: 49 Year
  Sex: Male

DRUGS (12)
  1. MULTI VITAMIN [Concomitant]
     Active Substance: VITAMINS
     Dates: start: 20180530
  2. COMPLEX MSUD POWDER [Concomitant]
     Dates: start: 20180530
  3. IMATINIB. [Suspect]
     Active Substance: IMATINIB MESYLATE
     Indication: SOFT TISSUE SARCOMA
     Route: 046
     Dates: start: 20180110
  4. VITAMIN C [Concomitant]
     Active Substance: ASCORBIC ACID
     Dates: start: 20180530
  5. PRAVASTATIN. [Concomitant]
     Active Substance: PRAVASTATIN
     Dates: start: 20180530
  6. FOSAMAX [Concomitant]
     Active Substance: ALENDRONATE SODIUM
     Dates: start: 20180530
  7. MACALCIN [Concomitant]
     Dates: start: 20180530
  8. IMATINIB. [Suspect]
     Active Substance: IMATINIB MESYLATE
     Indication: MALIGNANT CONNECTIVE TISSUE NEOPLASM
     Route: 046
     Dates: start: 20180110
  9. CALCIUM / VIT D [Concomitant]
     Dates: start: 20180530
  10. FISH OIL [Concomitant]
     Active Substance: FISH OIL
     Dates: start: 20180530
  11. ASPIRIN. [Concomitant]
     Active Substance: ASPIRIN
     Dates: start: 20180530
  12. LEVOTHYROXINE. [Concomitant]
     Active Substance: LEVOTHYROXINE
     Dates: start: 20180530

REACTIONS (1)
  - Asthenia [None]
